APPROVED DRUG PRODUCT: LOXITANE IM
Active Ingredient: LOXAPINE HYDROCHLORIDE
Strength: EQ 50MG BASE/ML
Dosage Form/Route: INJECTABLE;INJECTION
Application: N018039 | Product #001
Applicant: ACTAVIS LABORATORIES UT INC
Approved: Approved Prior to Jan 1, 1982 | RLD: No | RS: No | Type: DISCN